FAERS Safety Report 14426044 (Version 1)
Quarter: 2018Q1

REPORT INFORMATION
  Report Type: Spontaneous
  Country: US (occurrence: US)
  Receive Date: 20180123
  Receipt Date: 20180123
  Transmission Date: 20180509
  Serious: Yes (Life-Threatening, Hospitalization)
  Sender: FDA-Public Use
  Company Number: US-PRESTIGE BRANDS -2040636

PATIENT
  Sex: Female

DRUGS (1)
  1. BC ARTHRITIS [Suspect]
     Active Substance: ASPIRIN\CAFFEINE
     Indication: HEADACHE
     Route: 048

REACTIONS (4)
  - Intracranial aneurysm [Recovered/Resolved]
  - Overdose [Recovered/Resolved]
  - Hospitalisation [Recovered/Resolved]
  - Necrosis of artery [Recovered/Resolved]
